FAERS Safety Report 6671818-X (Version None)
Quarter: 2010Q2

REPORT INFORMATION
  Report Type: 
  Country: None (occurrence: None)
  Receive Date: 20100407
  Receipt Date: 20100402
  Transmission Date: 20101027
  Serious: Yes (Life-Threatening, Hospitalization)
  Sender: FDA-Public Use
  Company Number: US-ROCHE-695288

PATIENT
  Sex: Male
  Weight: 84.5 kg

DRUGS (12)
  1. TOCILIZUMAB [Suspect]
     Indication: RHEUMATOID ARTHRITIS
     Dosage: LAST DOSE PRIOR TO SAE: 08 MARCH 2010
     Route: 042
     Dates: start: 20060925
  2. TOCILIZUMAB [Suspect]
     Dosage: EARLIER ENROLLED IN WA18063
     Route: 042
  3. CALTRATE [Concomitant]
     Dates: start: 19940824
  4. ACTONEL [Concomitant]
     Dates: start: 20010109
  5. NEXIUM [Concomitant]
     Dates: start: 20020701
  6. SKELAXIN [Concomitant]
     Dates: start: 20060217
  7. UROXATRAL [Concomitant]
     Dates: start: 20070312
  8. TRICOR [Concomitant]
     Dates: start: 20080603
  9. PLAQUENIL [Concomitant]
     Dates: start: 19981002
  10. IMURAN [Concomitant]
     Dates: start: 19910830
  11. PREDNISONE TAB [Concomitant]
     Dates: start: 20090805
  12. ADVIL [Concomitant]
     Dates: start: 20030101

REACTIONS (1)
  - MYOCARDIAL INFARCTION [None]
